FAERS Safety Report 20479634 (Version 1)
Quarter: 2022Q1

REPORT INFORMATION
  Report Type: Spontaneous
  Country: US (occurrence: None)
  Receive Date: 20220215
  Receipt Date: 20220215
  Transmission Date: 20220424
  Serious: No
  Sender: FDA-Public Use
  Company Number: None

PATIENT
  Age: 53 Year
  Sex: Female

DRUGS (1)
  1. DIMETHYL FUMARATE [Suspect]
     Active Substance: DIMETHYL FUMARATE
     Dosage: FREQUENCY : TWICE A DAY;?
     Route: 048

REACTIONS (8)
  - Fall [None]
  - Weight decreased [None]
  - Urinary tract infection [None]
  - Hip fracture [None]
  - Upper limb fracture [None]
  - Speech disorder [None]
  - Gait disturbance [None]
  - Mastication disorder [None]

NARRATIVE: CASE EVENT DATE: 20220125
